FAERS Safety Report 23516366 (Version 1)
Quarter: 2024Q1

REPORT INFORMATION
  Report Type: Spontaneous
  Country: GB (occurrence: GB)
  Receive Date: 20240213
  Receipt Date: 20240213
  Transmission Date: 20240410
  Serious: Yes (Other)
  Sender: FDA-Public Use
  Company Number: None

PATIENT
  Age: 61 Year
  Sex: Male
  Weight: 120 kg

DRUGS (2)
  1. FLUCONAZOLE [Suspect]
     Active Substance: FLUCONAZOLE
     Indication: Sepsis
     Dosage: 200 MILLIGRAM, QD (INJECTION)
     Route: 065
     Dates: start: 20231108
  2. LINEZOLID [Suspect]
     Active Substance: LINEZOLID
     Indication: Sepsis
     Dosage: 1200 MILLIGRAM, QD (INJECTION) 600 MG (BID)
     Route: 065
     Dates: start: 20231105, end: 20231108

REACTIONS (1)
  - Rash erythematous [Not Recovered/Not Resolved]
